FAERS Safety Report 4477535-9 (Version None)
Quarter: 2004Q4

REPORT INFORMATION
  Report Type: 
  Country: None (occurrence: None)
  Receive Date: 20041008
  Receipt Date: 20040929
  Transmission Date: 20050328
  Serious: Yes (Other)
  Sender: FDA-Public Use
  Company Number: ALB/04/05/USA

PATIENT
  Age: 51 Year
  Sex: Female
  Weight: 109.7705 kg

DRUGS (7)
  1. ALBUMIN HUMAN 5% (ALBUMIN HUMAN) [Suspect]
     Indication: BLOOD PRODUCT TRANSFUSION
     Dosage: 500 ML, I.V.
     Route: 042
     Dates: start: 20040927, end: 20041006
  2. MESTINON [Concomitant]
  3. CELLCEPT [Concomitant]
  4. GLUCOPHAGE [Concomitant]
  5. ALLEGRA [Concomitant]
  6. NAPROSYN [Concomitant]
  7. TORADON (NSAID'S) [Concomitant]

REACTIONS (5)
  - HYPERSENSITIVITY [None]
  - PHARYNGEAL ERYTHEMA [None]
  - PRURITUS [None]
  - THROAT IRRITATION [None]
  - URTICARIA [None]
